FAERS Safety Report 6618858-4 (Version None)
Quarter: 2010Q1

REPORT INFORMATION
  Report Type: 
  Country: None (occurrence: None)
  Receive Date: 20100308
  Receipt Date: 20100226
  Transmission Date: 20100710
  Serious: Yes (Life-Threatening, Hospitalization)
  Sender: FDA-Public Use
  Company Number: US-BAXTER-2010BH004461

PATIENT
  Age: 59 Year
  Sex: Male
  Weight: 106 kg

DRUGS (1)
  1. HEPARIN SODIUM INJECTION [Suspect]
     Indication: DRUG USE FOR UNKNOWN INDICATION
     Route: 065
     Dates: start: 20071001, end: 20080301

REACTIONS (2)
  - APPARENT DEATH [None]
  - MALAISE [None]
